FAERS Safety Report 4765530-1 (Version None)
Quarter: 2005Q3

REPORT INFORMATION
  Report Type: 
  Country: None (occurrence: None)
  Receive Date: 20050906
  Receipt Date: 20050824
  Transmission Date: 20060218
  Serious: Yes (Disabling)
  Sender: FDA-Public Use
  Company Number: 2005120397

PATIENT
  Age: 54 Year
  Sex: Female
  Weight: 77 kg

DRUGS (12)
  1. VORICONAZOLE (VORICONAZOLE) [Suspect]
     Indication: CANDIDIASIS
     Dosage: ORAL
     Route: 048
     Dates: start: 20041129, end: 20050808
  2. FRUMIL (AMILORIDE HYDROCHLORIDE, FUROSEMIDE) [Concomitant]
  3. AMLODIPINE [Concomitant]
  4. PREDNISONE [Concomitant]
  5. METHOTREXATE [Concomitant]
  6. LAMICTAL [Concomitant]
  7. ATORVASTATIN CALCIUM [Concomitant]
  8. METOPROLOL TARTRATE [Concomitant]
  9. RISEDRONATE (RISEDRONIC ACID) [Concomitant]
  10. CALCICHEW (CALCIUM CARBONATE) [Concomitant]
  11. WARFARIN SODIUM [Concomitant]
  12. SLOW-K [Concomitant]

REACTIONS (4)
  - BLISTER [None]
  - EYELID DISORDER [None]
  - LIP BLISTER [None]
  - PHOTOSENSITIVITY REACTION [None]
